FAERS Safety Report 5000177-3 (Version None)
Quarter: 2006Q1

REPORT INFORMATION
  Report Type: 
  Country: None (occurrence: None)
  Receive Date: 20060315
  Receipt Date: 20060210
  Transmission Date: 20060701
  Serious: Yes (Other)
  Sender: FDA-Public Use
  Company Number: 436186

PATIENT
  Sex: Female

DRUGS (2)
  1. BONIVA [Suspect]
     Dates: start: 20050126
  2. FOSAMAX [Concomitant]

REACTIONS (4)
  - ABDOMINAL PAIN UPPER [None]
  - NAUSEA [None]
  - SOMNOLENCE [None]
  - VOMITING [None]
